FAERS Safety Report 9764355 (Version 2)
Quarter: 2013Q4

REPORT INFORMATION
  Report Type: Spontaneous
  Country: US (occurrence: US)
  Receive Date: 20131217
  Receipt Date: 20131217
  Transmission Date: 20140711
  Serious: Yes (Other)
  Sender: FDA-Public Use
  Company Number: US-BIOGENIDEC-177536

PATIENT
  Age: 37 Year
  Sex: Female

DRUGS (2)
  1. AVONEX [Suspect]
     Indication: MULTIPLE SCLEROSIS
     Route: 030
     Dates: end: 19980929
  2. COPAXONE [Concomitant]

REACTIONS (9)
  - Lymphoma [Recovered/Resolved]
  - Cyst [Unknown]
  - Hypotension [Unknown]
  - Blindness transient [Recovered/Resolved]
  - Cataract [Unknown]
  - Intervertebral disc protrusion [Unknown]
  - Balance disorder [Unknown]
  - Drug hypersensitivity [Unknown]
  - Arthritis [Unknown]
